FAERS Safety Report 15821716 (Version 2)
Quarter: 2019Q1

REPORT INFORMATION
  Report Type: Spontaneous
  Country: GB (occurrence: GB)
  Receive Date: 20190114
  Receipt Date: 20190128
  Transmission Date: 20190417
  Serious: Yes (Other)
  Sender: FDA-Public Use
  Company Number: GB-ENDO PHARMACEUTICALS INC-2019-100019

PATIENT

DRUGS (1)
  1. FLUOXETINE HYDROCHLORIDE. [Suspect]
     Active Substance: FLUOXETINE HYDROCHLORIDE
     Indication: PRODUCT USED FOR UNKNOWN INDICATION
     Dosage: UNK UNKNOWN, UNKNOWN
     Route: 065
     Dates: end: 20180425

REACTIONS (3)
  - Foetal exposure during pregnancy [Recovered/Resolved]
  - Poor weight gain neonatal [Recovered/Resolved]
  - Exposure via breast milk [Unknown]
